FAERS Safety Report 16058969 (Version 2)
Quarter: 2019Q2

REPORT INFORMATION
  Report Type: Spontaneous
  Country: US (occurrence: US)
  Receive Date: 20190311
  Receipt Date: 20190426
  Transmission Date: 20190711
  Serious: Yes (Other)
  Sender: FDA-Public Use
  Company Number: US-ASTRAZENECA-2018SF34415

PATIENT
  Age: 23552 Day
  Sex: Female

DRUGS (25)
  1. CYMBALTA [Concomitant]
     Active Substance: DULOXETINE HYDROCHLORIDE
  2. NITROGLYCERINE [Concomitant]
     Active Substance: NITROGLYCERIN
  3. NAPROXEN. [Concomitant]
     Active Substance: NAPROXEN
  4. ATIVAN [Concomitant]
     Active Substance: LORAZEPAM
  5. HYDROMORPHONE [Concomitant]
     Active Substance: HYDROMORPHONE
  6. PRILOSEC [Suspect]
     Active Substance: OMEPRAZOLE MAGNESIUM
     Indication: DYSPEPSIA
     Dosage: GENERIC
     Route: 065
     Dates: start: 20090112, end: 20120705
  7. LANTUS [Concomitant]
     Active Substance: INSULIN GLARGINE
  8. POTASSIUM CHLORIDE. [Concomitant]
     Active Substance: POTASSIUM CHLORIDE
  9. SIMVASTATIN. [Concomitant]
     Active Substance: SIMVASTATIN
  10. DOXYCYCLINE HYCLATE. [Concomitant]
     Active Substance: DOXYCYCLINE HYCLATE
  11. PREDNISONE. [Concomitant]
     Active Substance: PREDNISONE
  12. ASPIRINE [Concomitant]
     Active Substance: ASPIRIN
  13. GABAPENTIN. [Concomitant]
     Active Substance: GABAPENTIN
  14. PRILOSEC [Suspect]
     Active Substance: OMEPRAZOLE MAGNESIUM
     Indication: DYSPEPSIA
     Route: 048
     Dates: start: 20150604
  15. ALBUTEROL. [Concomitant]
     Active Substance: ALBUTEROL
  16. ATORVASTATIN [Concomitant]
     Active Substance: ATORVASTATIN
  17. METOPROLOL. [Concomitant]
     Active Substance: METOPROLOL
  18. MIRAPEX [Concomitant]
     Active Substance: PRAMIPEXOLE DIHYDROCHLORIDE
  19. CIPROFLOXACIN. [Concomitant]
     Active Substance: CIPROFLOXACIN
  20. PRILOSEC [Suspect]
     Active Substance: OMEPRAZOLE MAGNESIUM
     Indication: DYSPEPSIA
     Route: 048
     Dates: start: 2015, end: 2016
  21. WELLBUTRIN [Concomitant]
     Active Substance: BUPROPION HYDROCHLORIDE
  22. PRILOSEC [Suspect]
     Active Substance: OMEPRAZOLE MAGNESIUM
     Indication: DYSPEPSIA
     Route: 048
     Dates: start: 20100317, end: 20160105
  23. CLOPIDOGREL [Concomitant]
     Active Substance: CLOPIDOGREL BISULFATE
  24. FORTAMET [Concomitant]
     Active Substance: METFORMIN HYDROCHLORIDE
  25. FUROSEMIDE. [Concomitant]
     Active Substance: FUROSEMIDE

REACTIONS (3)
  - Renal failure [Unknown]
  - Clostridium difficile infection [Unknown]
  - Chronic kidney disease [Not Recovered/Not Resolved]

NARRATIVE: CASE EVENT DATE: 20160105
